FAERS Safety Report 8976990 (Version 1)
Quarter: 2012Q4

REPORT INFORMATION
  Report Type: 
  Country: US (occurrence: US)
  Receive Date: 20121220
  Receipt Date: 20121220
  Transmission Date: 20130627
  Serious: No
  Sender: FDA-Public Use
  Company Number: US-GLAXOSMITHKLINE-A0975319A

PATIENT
  Age: 62 Year
  Sex: Male

DRUGS (2)
  1. SORIATANE [Suspect]
     Indication: TRANSIENT ACANTHOLYTIC DERMATOSIS
     Dosage: 25MG Per day
     Route: 048
     Dates: start: 20120401, end: 20120418
  2. HYDROXYZINE [Concomitant]

REACTIONS (1)
  - Sunburn [Unknown]
